FAERS Safety Report 7755328-4 (Version None)
Quarter: 2011Q3

REPORT INFORMATION
  Report Type: 
  Country: None (occurrence: None)
  Receive Date: 20110916
  Receipt Date: 20110908
  Transmission Date: 20111222
  Serious: Yes (Other)
  Sender: FDA-Public Use
  Company Number: US-JNJFOC-20110705331

PATIENT
  Sex: Male

DRUGS (5)
  1. LEXAPRO [Concomitant]
     Route: 065
     Dates: start: 20100701, end: 20110301
  2. COGENTIN [Concomitant]
     Indication: ADVERSE DRUG REACTION
     Dates: start: 20081201, end: 20090701
  3. INVEGA [Suspect]
     Indication: SCHIZOPHRENIA
     Route: 048
     Dates: start: 20081201, end: 20110701
  4. LEXAPRO [Concomitant]
     Indication: DEPRESSION
     Route: 065
     Dates: start: 20081201, end: 20090901
  5. ATIVAN [Concomitant]
     Indication: AGITATION
     Dates: start: 20081201, end: 20090501

REACTIONS (1)
  - WHITE BLOOD CELL COUNT DECREASED [None]
